FAERS Safety Report 19197620 (Version 1)
Quarter: 2021Q2

REPORT INFORMATION
  Report Type: Spontaneous
  Country: CZ (occurrence: CZ)
  Receive Date: 20210430
  Receipt Date: 20210430
  Transmission Date: 20210717
  Serious: Yes (Other)
  Sender: FDA-Public Use
  Company Number: CZ-ORGANON-O2104CZE002314

PATIENT
  Age: 24 Year
  Sex: Female

DRUGS (2)
  1. ELOCOM [Suspect]
     Active Substance: MOMETASONE FUROATE
     Indication: ECZEMA
     Dosage: EACH OTHER DAY (QOD)
     Route: 061
     Dates: start: 2019, end: 2021
  2. ADVANTAN [Suspect]
     Active Substance: METHYLPREDNISOLONE ACEPONATE
     Indication: ECZEMA
     Dosage: ONCE A DAY (QD)
     Route: 061
     Dates: start: 2019, end: 2021

REACTIONS (3)
  - Erythema [Not Recovered/Not Resolved]
  - Eczema [Not Recovered/Not Resolved]
  - Substance dependence [Not Recovered/Not Resolved]
